FAERS Safety Report 16661776 (Version 1)
Quarter: 2019Q3

REPORT INFORMATION
  Report Type: Spontaneous
  Country: ES (occurrence: ES)
  Receive Date: 20190802
  Receipt Date: 20190802
  Transmission Date: 20191004
  Serious: Yes (Hospitalization, Other)
  Sender: FDA-Public Use
  Company Number: ES-PFIZER INC-2019325295

PATIENT
  Age: 32 Year
  Sex: Male

DRUGS (2)
  1. KETAMINE HCL [Suspect]
     Active Substance: KETAMINE HYDROCHLORIDE
     Dosage: 1-2 G, DAILY
     Dates: start: 2002, end: 20190516
  2. MIRTAZAPINE. [Concomitant]
     Active Substance: MIRTAZAPINE
     Dosage: 30 MG, DAILY
     Route: 048
     Dates: end: 20190603

REACTIONS (5)
  - Drug abuse [Unknown]
  - Dysuria [Not Recovered/Not Resolved]
  - Oedema [Unknown]
  - Pollakiuria [Not Recovered/Not Resolved]
  - Cystitis noninfective [Not Recovered/Not Resolved]

NARRATIVE: CASE EVENT DATE: 2002
